FAERS Safety Report 4936284-0 (Version None)
Quarter: 2006Q1

REPORT INFORMATION
  Report Type: 
  Country: None (occurrence: None)
  Receive Date: 20060127
  Receipt Date: 20051129
  Transmission Date: 20060701
  Serious: Yes (Other)
  Sender: FDA-Public Use
  Company Number: 2005161482

PATIENT
  Sex: Female

DRUGS (1)
  1. LYRICA [Suspect]
     Indication: BIPOLAR DISORDER
     Dosage: (1 D)
     Dates: start: 20050101

REACTIONS (4)
  - DIPLOPIA [None]
  - FEELING ABNORMAL [None]
  - UNEVALUABLE EVENT [None]
  - VISUAL DISTURBANCE [None]
